FAERS Safety Report 7817010-4 (Version None)
Quarter: 2011Q4

REPORT INFORMATION
  Report Type: 
  Country: None (occurrence: None)
  Receive Date: 20111013
  Receipt Date: 20111003
  Transmission Date: 20120403
  Serious: Yes (Other)
  Sender: FDA-Public Use
  Company Number: ACO_26516_2011

PATIENT
  Age: 55 Year
  Sex: Female
  Weight: 6033 kg

DRUGS (5)
  1. IBUPROFEN [Concomitant]
  2. AMPYRA [Suspect]
     Indication: MULTIPLE SCLEROSIS
     Dosage: 10 MG, BID, ORAL
     Route: 048
     Dates: start: 20110501, end: 20110907
  3. METOPROLOL TARTRATE [Concomitant]
  4. ACETAMINOPHEN [Concomitant]
  5. PREMARIN [Concomitant]

REACTIONS (4)
  - CONDITION AGGRAVATED [None]
  - DIZZINESS [None]
  - DEPRESSION [None]
  - SUICIDAL IDEATION [None]
